FAERS Safety Report 8553223-4 (Version None)
Quarter: 2012Q3

REPORT INFORMATION
  Report Type: 
  Country: None (occurrence: None)
  Receive Date: 20120731
  Receipt Date: 20120726
  Transmission Date: 20120928
  Serious: Yes (Other)
  Sender: FDA-Public Use
  Company Number: US-RB-042961-12

PATIENT
  Age: 54 Year
  Sex: Female

DRUGS (1)
  1. MUCINEX [Suspect]
     Indication: COUGH
     Dosage: TAKEN FOR A WEEK ON AND OFF
     Route: 048
     Dates: start: 20120719

REACTIONS (2)
  - SWOLLEN TONGUE [None]
  - TONGUE DISORDER [None]
